FAERS Safety Report 24623676 (Version 1)
Quarter: 2024Q4

REPORT INFORMATION
  Report Type: Spontaneous
  Country: JP (occurrence: JP)
  Receive Date: 20241115
  Receipt Date: 20241115
  Transmission Date: 20250115
  Serious: Yes (Other)
  Sender: PANACEA BIOTEC PHARMA LIMITED
  Company Number: JP-PBT-009863

PATIENT
  Age: 73 Year
  Sex: Male

DRUGS (2)
  1. TACROLIMUS [Suspect]
     Active Substance: TACROLIMUS
     Indication: Cytomegalovirus enteritis
     Dosage: 2-4MG ADJUSTED FOR TROUGH VALUES: 10-20NG/ML
     Route: 065
  2. TACROLIMUS [Suspect]
     Active Substance: TACROLIMUS
     Indication: Pseudomembranous colitis
     Dosage: 2-4MG ADJUSTED FOR TROUGH VALUES: 10-20NG/ML
     Route: 065

REACTIONS (1)
  - Drug ineffective for unapproved indication [Unknown]
